FAERS Safety Report 17461663 (Version 1)
Quarter: 2020Q1

REPORT INFORMATION
  Report Type: Spontaneous
  Country: US (occurrence: US)
  Receive Date: 20200226
  Receipt Date: 20200226
  Transmission Date: 20200409
  Serious: Yes (Death)
  Sender: FDA-Public Use
  Company Number: None

PATIENT
  Age: 55 Year
  Sex: Male

DRUGS (9)
  1. METHOTREXATE TAB 2.5 MG [Concomitant]
  2. HUMIRA [Suspect]
     Active Substance: ADALIMUMAB
     Indication: RHEUMATOID ARTHRITIS
     Dosage: ?          OTHER FREQUENCY:EVERY OTHER WEEK;?
     Route: 058
     Dates: start: 20170316, end: 20200210
  3. PENICILLIN VK TAB 500 MG [Concomitant]
  4. ESOMEPRAZOLE MAG CAP 20 MG DR [Concomitant]
  5. CLINDAMYCIN GEL 1% [Concomitant]
  6. AMOXICILLIN CAP 500 MG [Concomitant]
  7. ALFUZOSIN TAB 10 MG ER [Concomitant]
  8. MINOCYCLINE CAP 100 MG [Concomitant]
  9. DICLOFENAC POT TAB 50 MG [Concomitant]

REACTIONS (1)
  - Death [None]
